FAERS Safety Report 24049222 (Version 1)
Quarter: 2024Q3

REPORT INFORMATION
  Report Type: Report from Study
  Country: US (occurrence: US)
  Receive Date: 20240704
  Receipt Date: 20240704
  Transmission Date: 20241017
  Serious: Yes (Other)
  Sender: ABBVIE
  Company Number: US-ABBVIE-5822724

PATIENT
  Sex: Female

DRUGS (1)
  1. SKYRIZI [Suspect]
     Active Substance: RISANKIZUMAB-RZAA
     Indication: Crohn^s disease
     Route: 058
     Dates: start: 20231110

REACTIONS (6)
  - Skin cancer [Unknown]
  - Precancerous skin lesion [Unknown]
  - Seborrhoeic keratosis [Unknown]
  - Gastrointestinal disorder [Unknown]
  - Rash papular [Unknown]
  - Skin papilloma [Unknown]

NARRATIVE: CASE EVENT DATE: 20240101
